FAERS Safety Report 5360255-6 (Version None)
Quarter: 2007Q2

REPORT INFORMATION
  Report Type: 
  Country: None (occurrence: None)
  Receive Date: 20070618
  Receipt Date: 20070611
  Transmission Date: 20071010
  Serious: Yes (Disabling)
  Sender: FDA-Public Use
  Company Number: US-ELI_LILLY_AND_COMPANY-US200703002008

PATIENT
  Age: 50 Year
  Sex: Female
  Weight: 90.702 kg

DRUGS (3)
  1. ZYPREXA [Suspect]
     Dosage: 20 MG, UNK
     Dates: start: 19960101, end: 20070201
  2. ABILIFY [Concomitant]
     Dates: start: 20070201
  3. PAXIL [Concomitant]
     Dates: start: 20061201

REACTIONS (9)
  - BLINDNESS [None]
  - BLOOD CHOLESTEROL INCREASED [None]
  - BLOOD TRIGLYCERIDES INCREASED [None]
  - DEPRESSION [None]
  - DIABETES MELLITUS NON-INSULIN-DEPENDENT [None]
  - OBESITY [None]
  - PSYCHOTIC DISORDER [None]
  - VISION BLURRED [None]
  - WEIGHT INCREASED [None]
